FAERS Safety Report 5313833-4 (Version None)
Quarter: 2007Q2

REPORT INFORMATION
  Report Type: 
  Country: None (occurrence: None)
  Receive Date: 20070501
  Receipt Date: 20070427
  Transmission Date: 20071010
  Serious: Yes (Other)
  Sender: FDA-Public Use
  Company Number: US-GLAXOSMITHKLINE-A0649099A

PATIENT
  Age: 33 Year
  Sex: Male

DRUGS (2)
  1. VENTOLIN [Suspect]
     Indication: ASTHMA
     Route: 055
     Dates: start: 20070101
  2. PROVENTIL NEBULIZER [Concomitant]

REACTIONS (3)
  - ABDOMINAL PAIN UPPER [None]
  - ASTHMA [None]
  - PHARYNGOLARYNGEAL PAIN [None]
